FAERS Safety Report 14410616 (Version 2)
Quarter: 2018Q1

REPORT INFORMATION
  Report Type: Spontaneous
  Country: DE (occurrence: DE)
  Receive Date: 20180119
  Receipt Date: 20180208
  Transmission Date: 20180509
  Serious: Yes (Other)
  Sender: FDA-Public Use
  Company Number: PHHY2018DE007915

PATIENT

DRUGS (2)
  1. MICLAST [Suspect]
     Active Substance: CICLOPIROX OLAMINE
     Indication: ONYCHOMYCOSIS
     Dosage: UNK UNK, QD
     Route: 061
     Dates: start: 20160408, end: 201708
  2. LAMISIL [Suspect]
     Active Substance: TERBINAFINE HYDROCHLORIDE
     Indication: INFECTION
     Dosage: UNK UNK, QD
     Route: 065

REACTIONS (4)
  - Off label use [Unknown]
  - Product colour issue [Unknown]
  - Incorrect drug administration duration [Unknown]
  - Nail discolouration [Recovering/Resolving]

NARRATIVE: CASE EVENT DATE: 20170811
